FAERS Safety Report 6275581-6 (Version None)
Quarter: 2009Q3

REPORT INFORMATION
  Report Type: 
  Country: None (occurrence: None)
  Receive Date: 20090721
  Receipt Date: 20090715
  Transmission Date: 20100115
  Serious: Yes (Hospitalization)
  Sender: FDA-Public Use
  Company Number: DE-ABBOTT-09P-062-0585558-00

PATIENT
  Sex: Female

DRUGS (8)
  1. HUMIRA [Suspect]
     Indication: RHEUMATOID ARTHRITIS
     Route: 058
     Dates: start: 20080814
  2. FOLIC ACID [Concomitant]
     Indication: RHEUMATOID ARTHRITIS
     Dosage: UNKNOWN DAILY DOSE
  3. AMISULPRID [Concomitant]
     Indication: MENTAL DISORDER
     Dosage: UNKNOWN DAILY DOSE
  4. LI+ [Concomitant]
     Indication: MENTAL DISORDER
  5. ZOLOFT [Concomitant]
     Indication: MENTAL DISORDER
     Dosage: UNKNOWN DAILY DOSE
  6. SAROTEN [Concomitant]
     Indication: MENTAL DISORDER
     Dosage: UNKNOWN DAILY DOSE
  7. MTX [Concomitant]
     Indication: RHEUMATOID ARTHRITIS
     Dosage: UNKNOWN DAILY DOSE
  8. L-THYROXIN [Concomitant]
     Indication: DRUG USE FOR UNKNOWN INDICATION
     Dosage: UNKNOWN DAILY DOSE

REACTIONS (1)
  - MENTAL DISORDER [None]
